FAERS Safety Report 17194437 (Version 1)
Quarter: 2019Q4

REPORT INFORMATION
  Report Type: Spontaneous
  Country: GB (occurrence: GB)
  Receive Date: 20191224
  Receipt Date: 20191224
  Transmission Date: 20200122
  Serious: Yes (Hospitalization, Other)
  Sender: FDA-Public Use
  Company Number: GB-AMGEN-GBRSP2019211020

PATIENT
  Age: 66 Year
  Sex: Female

DRUGS (3)
  1. COCODAMOL [Concomitant]
     Active Substance: ACETAMINOPHEN\CODEINE PHOSPHATE
  2. TAMOXIFEN [Concomitant]
     Active Substance: TAMOXIFEN
  3. XGEVA [Suspect]
     Active Substance: DENOSUMAB
     Indication: METASTASES TO BONE
     Dosage: 120 MILLIGRAM
     Route: 065
     Dates: start: 20160321, end: 20190730

REACTIONS (1)
  - Hip fracture [Unknown]

NARRATIVE: CASE EVENT DATE: 20190820
